FAERS Safety Report 15157834 (Version 3)
Quarter: 2019Q2

REPORT INFORMATION
  Report Type: Spontaneous
  Country: US (occurrence: US)
  Receive Date: 20180718
  Receipt Date: 20190603
  Transmission Date: 20190711
  Serious: No
  Sender: FDA-Public Use
  Company Number: US-PFIZER INC-2018288219

PATIENT
  Age: 47 Year
  Sex: Female
  Weight: 73.94 kg

DRUGS (2)
  1. TRAMADOL. [Concomitant]
     Active Substance: TRAMADOL
     Indication: PAIN
     Dosage: UNK, DAILY (50MG, 1-2 TABLETS BY MOUTH DAILY)
     Route: 048
     Dates: start: 2018
  2. METHOTREXATE SODIUM. [Suspect]
     Active Substance: METHOTREXATE SODIUM
     Indication: RHEUMATOID ARTHRITIS
     Dosage: 8 DF, UNK (8 PILLS/TABLETS BY MOUTH EVERY MONDAY)
     Route: 048
     Dates: end: 201808

REACTIONS (4)
  - Nausea [Unknown]
  - Diarrhoea [Unknown]
  - Pollakiuria [Unknown]
  - Oral herpes [Unknown]
